FAERS Safety Report 23919563 (Version 1)
Quarter: 2024Q2

REPORT INFORMATION
  Report Type: Spontaneous
  Country: US (occurrence: US)
  Receive Date: 20240530
  Receipt Date: 20240530
  Transmission Date: 20240716
  Serious: No
  Sender: FDA-Public Use
  Company Number: US-MELINTA THERAPEUTICS, LLC-US-MLNT-24-00234

PATIENT

DRUGS (2)
  1. REZZAYO [Suspect]
     Active Substance: REZAFUNGIN
     Indication: Product used for unknown indication
     Dosage: INITIAL LOADING DOSE 400 MG, FOLLOWED BY 200 MG DOSE WEEK LATER
     Route: 042
  2. REZZAYO [Suspect]
     Active Substance: REZAFUNGIN
     Dosage: ADMINISTERED 400 MG DOSE RATHER THAN THE RECOMMENDED 200 MG
     Route: 042
     Dates: start: 20240429, end: 20240429

REACTIONS (2)
  - Accidental overdose [Unknown]
  - No adverse event [Unknown]

NARRATIVE: CASE EVENT DATE: 20240429
